FAERS Safety Report 20911225 (Version 1)
Quarter: 2022Q2

REPORT INFORMATION
  Report Type: Spontaneous
  Country: NL (occurrence: NL)
  Receive Date: 20220603
  Receipt Date: 20220603
  Transmission Date: 20220721
  Serious: Yes (Other)
  Sender: FDA-Public Use
  Company Number: None

PATIENT
  Sex: Female
  Weight: 78 kg

DRUGS (1)
  1. ALBUTEROL [Suspect]
     Active Substance: ALBUTEROL
     Indication: Product used for unknown indication
     Dosage: 5 DOSAGE FORM (5 X ONE INHALATION) (AEROSOL )
     Route: 055

REACTIONS (4)
  - Abortion spontaneous [Recovered/Resolved]
  - Palpitations [Unknown]
  - Tremor [Unknown]
  - Maternal exposure during pregnancy [Recovered/Resolved]
